FAERS Safety Report 7981606-X (Version None)
Quarter: 2011Q4

REPORT INFORMATION
  Report Type: 
  Country: None (occurrence: None)
  Receive Date: 20111213
  Receipt Date: 20111201
  Transmission Date: 20120403
  Serious: Yes (Other)
  Sender: FDA-Public Use
  Company Number: TPA2011A03589

PATIENT
  Age: 60 Year
  Sex: Male
  Weight: 119.296 kg

DRUGS (14)
  1. PROBENECID [Concomitant]
  2. ANDROGEL PUMP (TESTOSTERONE) [Concomitant]
  3. METFORMIN HCL [Concomitant]
  4. BALACET (PARACETAMOL, DEXTROPROPOXYPHENE HYDROCHLORIDE) [Concomitant]
  5. FLOMAX [Concomitant]
  6. VYTORIN [Concomitant]
  7. GLIMEPIRIDE [Concomitant]
  8. ACTOS [Suspect]
     Indication: TYPE 2 DIABETES MELLITUS
     Dosage: 45 MG, 1 IN 1 D, PER ORAL
     Route: 048
     Dates: start: 20050104, end: 20110621
  9. AMBIEN [Concomitant]
  10. LISINOPRIL [Concomitant]
  11. DEXLANSOPRAZOLE [Concomitant]
  12. CYMBALTA [Concomitant]
  13. NASACORT AQ (TRIAMCINOLONE ACETONIDE) [Concomitant]
  14. VICTOZA [Concomitant]

REACTIONS (7)
  - MICTURITION URGENCY [None]
  - POLLAKIURIA [None]
  - AZOTAEMIA [None]
  - CYSTITIS [None]
  - URINARY RETENTION [None]
  - BLADDER HYPERTROPHY [None]
  - HAEMATURIA [None]
